FAERS Safety Report 7706000-8 (Version None)
Quarter: 2011Q3

REPORT INFORMATION
  Report Type: 
  Country: None (occurrence: None)
  Receive Date: 20110824
  Receipt Date: 20110822
  Transmission Date: 20111222
  Serious: Yes (Hospitalization)
  Sender: FDA-Public Use
  Company Number: PHHY2011DE73719

PATIENT
  Sex: Female

DRUGS (5)
  1. OXYTOCIN [Suspect]
     Dosage: 10 IU, UNK
  2. OXYTOCIN [Suspect]
     Dosage: 3 IU, UNK
  3. METHERGINE [Suspect]
     Indication: CAESAREAN SECTION
     Dosage: 0.2 MG, UNK
  4. ERGOTREN [Suspect]
     Dosage: 3 ? 1 TABLETS, 2.025 MG ERGOMETRINE PHOSPHATE AND 3.375 MG ERGOCRISTINE PHOSPHATE
     Route: 048
  5. OXYTOCIN [Suspect]
     Dosage: 10 IU, ON FIRST AND SECOND DAY OF GIVING BIRTH

REACTIONS (14)
  - ERGOT POISONING [None]
  - INFARCTION [None]
  - BACK PAIN [None]
  - HEMIPARESIS [None]
  - BLOOD BRAIN BARRIER DEFECT [None]
  - COMPUTERISED TOMOGRAM ABNORMAL [None]
  - CENTRAL NERVOUS SYSTEM LESION [None]
  - POST LUMBAR PUNCTURE SYNDROME [None]
  - PARAPARESIS [None]
  - MYALGIA [None]
  - CEREBROVASCULAR SPASM [None]
  - SUBDURAL HAEMATOMA [None]
  - SPINAL HAEMANGIOMA [None]
  - PSYCHOMOTOR RETARDATION [None]
